FAERS Safety Report 6845707-1 (Version None)
Quarter: 2010Q3

REPORT INFORMATION
  Report Type: 
  Country: None (occurrence: None)
  Receive Date: 20100713
  Receipt Date: 20100625
  Transmission Date: 20110219
  Serious: Yes (Hospitalization, Other)
  Sender: FDA-Public Use
  Company Number: RB-06751-2010

PATIENT
  Sex: Male

DRUGS (2)
  1. SUBOXONE [Suspect]
     Indication: DRUG DEPENDENCE
     Dosage: (8 MG TID SUBLINGUAL)
     Route: 060
     Dates: start: 20100401
  2. DEPAKOTE [Suspect]
     Indication: MOOD SWINGS
     Dosage: (DOSING DETAILS UNKNOWN UNKNOWN)
     Dates: end: 20100101

REACTIONS (7)
  - AMMONIA INCREASED [None]
  - BLOOD GLUCOSE DECREASED [None]
  - CONDITION AGGRAVATED [None]
  - CONVULSION [None]
  - DRUG DEPENDENCE [None]
  - DRUG WITHDRAWAL SYNDROME [None]
  - LOSS OF CONSCIOUSNESS [None]
